FAERS Safety Report 7339117-0 (Version None)
Quarter: 2011Q1

REPORT INFORMATION
  Report Type: 
  Country: None (occurrence: None)
  Receive Date: 20110308
  Receipt Date: 20110303
  Transmission Date: 20110831
  Serious: No
  Sender: FDA-Public Use
  Company Number: US-TEVA-269911USA

PATIENT
  Sex: Female
  Weight: 104.42 kg

DRUGS (1)
  1. PLAN B ONE-STEP [Suspect]
     Indication: POST COITAL CONTRACEPTION
     Route: 048
     Dates: start: 20110220, end: 20110220

REACTIONS (7)
  - BACK PAIN [None]
  - BREAST DISCOMFORT [None]
  - HEADACHE [None]
  - INSOMNIA [None]
  - NAUSEA [None]
  - ABDOMINAL DISCOMFORT [None]
  - BREAST TENDERNESS [None]
